FAERS Safety Report 5522840-8 (Version None)
Quarter: 2007Q4

REPORT INFORMATION
  Report Type: 
  Country: None (occurrence: None)
  Receive Date: 20071120
  Receipt Date: 20071112
  Transmission Date: 20080405
  Serious: Yes (Other)
  Sender: FDA-Public Use
  Company Number: NO-AMGEN-UK250805

PATIENT

DRUGS (6)
  1. MIMPARA [Suspect]
     Route: 048
  2. CYCLOSPORINE [Concomitant]
     Route: 065
  3. TACROLIMUS [Concomitant]
     Route: 065
  4. MYCOPHENOLATE MOFETIL [Concomitant]
  5. AZATHIOPRINE [Concomitant]
     Route: 065
  6. CORTICOSTEROIDS [Concomitant]

REACTIONS (2)
  - DRUG INTERACTION [None]
  - RENAL IMPAIRMENT [None]
